FAERS Safety Report 12069240 (Version 2)
Quarter: 2016Q1

REPORT INFORMATION
  Report Type: Spontaneous
  Country: US (occurrence: US)
  Receive Date: 20160211
  Receipt Date: 20160330
  Transmission Date: 20160526
  Serious: Yes (Hospitalization)
  Sender: FDA-Public Use
  Company Number: US-PFIZER INC-2016077447

PATIENT
  Age: 70 Year
  Sex: Male
  Weight: 98 kg

DRUGS (12)
  1. METOPROLOL. [Concomitant]
     Active Substance: METOPROLOL
     Indication: BLOOD PRESSURE MEASUREMENT
     Dosage: 50 MG, 1X/DAY
  2. FLECAINIDE [Concomitant]
     Active Substance: FLECAINIDE
     Indication: HEART RATE IRREGULAR
     Dosage: 100 MG, 3X/DAY
  3. NORCO [Concomitant]
     Active Substance: ACETAMINOPHEN\HYDROCODONE BITARTRATE
     Indication: PAIN
     Dosage: 10/325 MG, 3X/DAY
  4. LYRICA [Suspect]
     Active Substance: PREGABALIN
     Indication: NEUROPATHY PERIPHERAL
     Dosage: 50 MG, 3X/DAY
  5. TRAMADOL. [Concomitant]
     Active Substance: TRAMADOL
     Indication: GROIN PAIN
     Dosage: 50 MG, UNK
  6. XANAX [Concomitant]
     Active Substance: ALPRAZOLAM
     Indication: ANXIETY
     Dosage: 0.5 MG, 3X/DAY
  7. PROZAC [Concomitant]
     Active Substance: FLUOXETINE HYDROCHLORIDE
     Indication: DEPRESSION
     Dosage: 20 MG, 1X/DAY
  8. IBUPROFEN. [Concomitant]
     Active Substance: IBUPROFEN
     Indication: HEADACHE
     Dosage: 200 MG, AS NEEDED AND EVERY FOUR HOURS
  9. LYRICA [Suspect]
     Active Substance: PREGABALIN
     Indication: ARTHRITIS
  10. PROTONIX [Concomitant]
     Active Substance: PANTOPRAZOLE SODIUM
     Indication: GASTROOESOPHAGEAL REFLUX DISEASE
     Dosage: 40 MG, 1X/DAY
  11. OTEZLA [Concomitant]
     Active Substance: APREMILAST
     Indication: ARTHRITIS
     Dosage: 30 MG TWO A DAY
  12. NITROSTAT [Concomitant]
     Active Substance: NITROGLYCERIN
     Indication: ANGINA PECTORIS
     Dosage: 0.4 MG, AS NEEDED

REACTIONS (3)
  - Drug ineffective [Unknown]
  - Myocardial infarction [Recovered/Resolved]
  - Intentional product misuse [Unknown]

NARRATIVE: CASE EVENT DATE: 20160110
